FAERS Safety Report 9135679 (Version 2)
Quarter: 2013Q1

REPORT INFORMATION
  Report Type: Spontaneous
  Country: GB (occurrence: GB)
  Receive Date: 20130304
  Receipt Date: 20130308
  Transmission Date: 20140127
  Serious: Yes (Other)
  Sender: FDA-Public Use
  Company Number: PHHY2013GB019728

PATIENT
  Age: 43 Year
  Sex: Female

DRUGS (5)
  1. CLONAZEPAM [Suspect]
     Indication: PARASOMNIA
     Dosage: 0.5 MG
  2. CLONAZEPAM [Suspect]
     Dosage: 1 MG
  3. TRAZODONE [Suspect]
     Indication: PARASOMNIA
  4. PAROXETINE [Suspect]
     Indication: PARASOMNIA
  5. GABAPENTIN [Suspect]
     Indication: PARASOMNIA

REACTIONS (6)
  - Drug intolerance [Unknown]
  - Depression [Unknown]
  - Weight increased [Unknown]
  - Sedation [Unknown]
  - Sleep disorder [Not Recovered/Not Resolved]
  - Condition aggravated [Unknown]
